FAERS Safety Report 14553793 (Version 1)
Quarter: 2018Q1

REPORT INFORMATION
  Report Type: Spontaneous
  Country: DE (occurrence: DE)
  Receive Date: 20180220
  Receipt Date: 20180220
  Transmission Date: 20180509
  Serious: Yes (Hospitalization)
  Sender: FDA-Public Use
  Company Number: DE-BAYER-2018-026246

PATIENT
  Sex: Female

DRUGS (8)
  1. CORTISONE [Suspect]
     Active Substance: CORTISONE\HYDROCORTISONE
     Dosage: 5 G, QID
  2. PLANTAGO OVATA HUSK [Suspect]
     Active Substance: HERBALS\PLANTAGO OVATA SEED COAT
     Indication: ABNORMAL FAECES
     Dosage: 5 G, QID
     Route: 048
     Dates: start: 20171209, end: 20171209
  3. OSVAREN [Suspect]
     Active Substance: CALCIUM ACETATE\MAGNESIUM CARBONATE
     Dosage: UNK UNK, TID
  4. PLANTAGO OVATA HUSK [Suspect]
     Active Substance: HERBALS\PLANTAGO OVATA SEED COAT
     Indication: ABNORMAL FAECES
     Dosage: 5 G, TID
     Route: 048
     Dates: start: 20170101, end: 20171208
  5. PANTOPRAZOLE [Suspect]
     Active Substance: PANTOPRAZOLE
     Dosage: 20 MG, UNK
  6. ACETYLSALICYLIC ACID({=100 MG) [Suspect]
     Active Substance: ASPIRIN
     Dosage: 100 MG, QD
  7. NEPHROTRANS [Suspect]
     Active Substance: SODIUM BICARBONATE
     Dosage: 6 G, QID
  8. L-THYROXIN [Suspect]
     Active Substance: LEVOTHYROXINE SODIUM
     Dosage: 125 MG, UNK

REACTIONS (3)
  - Hyperkalaemia [Recovered/Resolved]
  - Myalgia [Recovered/Resolved]
  - Asthenia [Recovered/Resolved]

NARRATIVE: CASE EVENT DATE: 20171210
